FAERS Safety Report 8341329-4 (Version None)
Quarter: 2012Q2

REPORT INFORMATION
  Report Type: 
  Country: None (occurrence: None)
  Receive Date: 20120507
  Receipt Date: 20120423
  Transmission Date: 20120825
  Serious: Yes (Hospitalization, Other)
  Sender: FDA-Public Use
  Company Number: US-MYLANLABS-2009AC000065

PATIENT
  Age: 77 Year
  Sex: Female
  Weight: 78.02 kg

DRUGS (27)
  1. POTASSIUM CHLORIDE [Concomitant]
  2. PREVACID [Concomitant]
  3. MECLIZINE [Concomitant]
  4. COREG [Concomitant]
  5. ATIVAN [Concomitant]
  6. CIPROFLOXACIN [Concomitant]
  7. AMPICILLIN [Concomitant]
  8. METHYLPREDNISOLONE [Concomitant]
  9. METOLAZONE [Concomitant]
  10. TOPROL-XL [Concomitant]
  11. CATAPRES [Concomitant]
  12. KLOR-CON [Concomitant]
  13. LORAZEPAM [Concomitant]
  14. TRIAMTERENE [Concomitant]
  15. FLUCONAZOLE [Concomitant]
  16. DETROL [Concomitant]
  17. ZETIA [Concomitant]
  18. NITROFURANTOIN [Concomitant]
  19. QUINIDINE GLUCONATE [Concomitant]
  20. CADUET [Concomitant]
  21. PREMARIN [Concomitant]
  22. DIGOXIN [Suspect]
     Route: 048
     Dates: start: 20070612, end: 20070623
  23. ANTIVERT [Concomitant]
  24. QUINAGLUTE [Concomitant]
  25. PHENAZOPYRIDINE HCL TAB [Concomitant]
  26. DILTIAZEM [Concomitant]
  27. PRAVACHOL [Concomitant]

REACTIONS (49)
  - ASTHENIA [None]
  - DIZZINESS [None]
  - CHEST PAIN [None]
  - FEELING ABNORMAL [None]
  - ANAEMIA [None]
  - HYPERLIPIDAEMIA [None]
  - BURSITIS [None]
  - BRADYCARDIA [None]
  - RENAL DISORDER [None]
  - CARDIAC MURMUR [None]
  - VOMITING [None]
  - ARTHRALGIA [None]
  - NAUSEA [None]
  - TOXICITY TO VARIOUS AGENTS [None]
  - HYPERTENSIVE HEART DISEASE [None]
  - DRUG LEVEL ABOVE THERAPEUTIC [None]
  - OEDEMA PERIPHERAL [None]
  - HYPERTENSION [None]
  - CEREBELLAR ATROPHY [None]
  - INJURY [None]
  - KNEE OPERATION [None]
  - BLOOD CREATININE INCREASED [None]
  - LABORATORY TEST ABNORMAL [None]
  - URETHRITIS [None]
  - ECONOMIC PROBLEM [None]
  - BLOOD UREA INCREASED [None]
  - CARDIAC FAILURE CONGESTIVE [None]
  - ATRIOVENTRICULAR BLOCK COMPLETE [None]
  - MITRAL VALVE PROLAPSE [None]
  - DIVERTICULUM [None]
  - POLYP [None]
  - GAIT DISTURBANCE [None]
  - TENDONITIS [None]
  - ARRHYTHMIA [None]
  - RENAL FAILURE [None]
  - PRESYNCOPE [None]
  - HYPOXIA [None]
  - IRRITABLE BOWEL SYNDROME [None]
  - OSTEOARTHRITIS [None]
  - ARTHRITIS [None]
  - DECREASED APPETITE [None]
  - DYSURIA [None]
  - OXYGEN SUPPLEMENTATION [None]
  - PALPITATIONS [None]
  - JOINT SWELLING [None]
  - ILL-DEFINED DISORDER [None]
  - URINARY TRACT INFECTION PSEUDOMONAL [None]
  - BLADDER OPERATION [None]
  - FLUID RETENTION [None]
